FAERS Safety Report 17095316 (Version 1)
Quarter: 2019Q4

REPORT INFORMATION
  Report Type: Spontaneous
  Country: HR (occurrence: HR)
  Receive Date: 20191130
  Receipt Date: 20191130
  Transmission Date: 20200122
  Serious: Yes (Other)
  Sender: FDA-Public Use
  Company Number: HR-TEVA-2019-HR-1143615

PATIENT
  Sex: Male
  Weight: 110 kg

DRUGS (3)
  1. IBUPROFEN. [Suspect]
     Active Substance: IBUPROFEN
     Dosage: 18 GRAM
     Route: 048
     Dates: start: 20190829, end: 20190829
  2. KETOPROFEN. [Suspect]
     Active Substance: KETOPROFEN
     Dosage: 560 MG
     Route: 048
     Dates: start: 20190829, end: 20190829
  3. PARACETAMOL [Suspect]
     Active Substance: ACETAMINOPHEN
     Dosage: 2 GRAM
     Route: 048
     Dates: start: 20190829, end: 20190829

REACTIONS (3)
  - Intentional overdose [Unknown]
  - Suicide attempt [Unknown]
  - No adverse event [Unknown]

NARRATIVE: CASE EVENT DATE: 20190829
